FAERS Safety Report 20383961 (Version 1)
Quarter: 2022Q1

REPORT INFORMATION
  Report Type: Other
  Country: AR (occurrence: None)
  Receive Date: 20220127
  Receipt Date: 20220127
  Transmission Date: 20220424
  Serious: Yes (Other)
  Sender: FDA-Public Use
  Company Number: AR-ROCHE-3004024

PATIENT
  Age: 1 Year
  Sex: Male

DRUGS (8)
  1. VEMURAFENIB [Suspect]
     Active Substance: VEMURAFENIB
     Indication: Langerhans^ cell histiocytosis
     Route: 065
  2. PREDNISONE [Concomitant]
     Active Substance: PREDNISONE
  3. VINBLASTINE [Concomitant]
     Active Substance: VINBLASTINE
  4. CYTARABINE [Concomitant]
     Active Substance: CYTARABINE
  5. INDOMETHACIN [Concomitant]
     Active Substance: INDOMETHACIN
  6. CLADRIBINE [Concomitant]
     Active Substance: CLADRIBINE
  7. METHOTREXATE [Concomitant]
     Active Substance: METHOTREXATE
  8. MERCAPTOPURINE [Concomitant]
     Active Substance: MERCAPTOPURINE

REACTIONS (1)
  - Skin toxicity [Unknown]
